FAERS Safety Report 8142011-9 (Version None)
Quarter: 2012Q1

REPORT INFORMATION
  Report Type: 
  Country: None (occurrence: None)
  Receive Date: 20120216
  Receipt Date: 20120210
  Transmission Date: 20120608
  Serious: Yes (Hospitalization, Disabling)
  Sender: FDA-Public Use
  Company Number: AU-B.I. PHARMACEUTICALS,INC./RIDGEFIELD-2012-AU-00084AU

PATIENT
  Sex: Female
  Weight: 67 kg

DRUGS (12)
  1. DIGOXIN [Concomitant]
     Dosage: 250 MCG
  2. FOLIC ACID [Concomitant]
     Dosage: 5 MG
  3. PRADAXA [Suspect]
     Indication: CEREBROVASCULAR ACCIDENT PROPHYLAXIS
     Dosage: 220 MG
     Dates: start: 20110729, end: 20120111
  4. PRADAXA [Suspect]
     Indication: ATRIAL FIBRILLATION
  5. METHOTREXATE [Concomitant]
     Dosage: 2.8571 MG
  6. PREDNISOLONE [Concomitant]
     Dosage: REDUCING SCHEDULE - 50MG/DAY ON ADMISSION
  7. PARACETAMOL SR [Concomitant]
  8. ATENOLOL [Concomitant]
     Dosage: 25 MG
  9. INDAPAMIDE SR [Concomitant]
     Dosage: 1.5 MG
  10. MESALAZINE EC [Concomitant]
     Dosage: 3000 MG
  11. ESOMEPRAZOLE [Concomitant]
     Dosage: 20 MG
  12. SYMBICORT [Concomitant]
     Dosage: 200/6

REACTIONS (1)
  - ISCHAEMIC CEREBRAL INFARCTION [None]
